FAERS Safety Report 4930667-0 (Version None)
Quarter: 2006Q1

REPORT INFORMATION
  Report Type: 
  Country: None (occurrence: None)
  Receive Date: 20060227
  Receipt Date: 20060216
  Transmission Date: 20060701
  Serious: Yes (Other)
  Sender: FDA-Public Use
  Company Number: 2006022862

PATIENT
  Age: 5 Year
  Sex: Female
  Weight: 21.7727 kg

DRUGS (1)
  1. BENADRYL [Suspect]
     Indication: SEASONAL ALLERGY
     Dosage: ORAL
     Route: 048
     Dates: start: 20030101, end: 20030101

REACTIONS (1)
  - THROAT TIGHTNESS [None]
